FAERS Safety Report 23486522 (Version 1)
Quarter: 2024Q1

REPORT INFORMATION
  Report Type: Spontaneous
  Country: US (occurrence: None)
  Receive Date: 20240205
  Receipt Date: 20240205
  Transmission Date: 20240410
  Serious: No
  Sender: FDA-Public Use
  Company Number: None

PATIENT
  Age: 4 Month
  Sex: Male
  Weight: 6.60 kg

DRUGS (1)
  1. BEYFORTUS [Suspect]
     Active Substance: NIRSEVIMAB-ALIP
     Dosage: FREQUENCY : ONCE;?
     Route: 030

REACTIONS (2)
  - Incorrect dose administered [None]
  - Dose calculation error [None]

NARRATIVE: CASE EVENT DATE: 20240108
